FAERS Safety Report 8310397-8 (Version None)
Quarter: 2012Q2

REPORT INFORMATION
  Report Type: 
  Country: None (occurrence: None)
  Receive Date: 20120425
  Receipt Date: 20120417
  Transmission Date: 20120825
  Serious: Yes (Hospitalization)
  Sender: FDA-Public Use
  Company Number: AU-JNJFOC-20111109508

PATIENT
  Sex: Male

DRUGS (6)
  1. STELARA [Suspect]
     Route: 058
     Dates: start: 20110316
  2. STELARA [Suspect]
     Indication: PSORIASIS
     Route: 058
     Dates: start: 20110530
  3. STELARA [Suspect]
     Route: 058
     Dates: start: 20101124
  4. STELARA [Suspect]
     Route: 058
     Dates: start: 20111121
  5. STELARA [Suspect]
     Route: 058
     Dates: start: 20101222
  6. STELARA [Suspect]
     Route: 058
     Dates: start: 20110823

REACTIONS (1)
  - MIGRAINE [None]
